FAERS Safety Report 25631117 (Version 2)
Quarter: 2025Q3

REPORT INFORMATION
  Report Type: Spontaneous
  Country: US (occurrence: US)
  Receive Date: 20250801
  Receipt Date: 20250903
  Transmission Date: 20251021
  Serious: Yes (Hospitalization, Other)
  Sender: JOHNSON AND JOHNSON
  Company Number: US-JNJFOC-20250724922

PATIENT
  Age: 76 Year
  Sex: Male
  Weight: 76.66 kg

DRUGS (28)
  1. CARVYKTI [Suspect]
     Active Substance: CILTACABTAGENE AUTOLEUCEL
     Indication: Plasma cell myeloma
     Route: 065
     Dates: start: 20220818, end: 20220818
  2. ARANESP [Concomitant]
     Active Substance: DARBEPOETIN ALFA
     Indication: Anaemia
     Dates: start: 20221027, end: 20250729
  3. ARANESP [Concomitant]
     Active Substance: DARBEPOETIN ALFA
     Indication: Chronic kidney disease
  4. PANTOPRAZOLE [Concomitant]
     Active Substance: PANTOPRAZOLE
     Indication: Barrett^s oesophagus
  5. PANTOPRAZOLE [Concomitant]
     Active Substance: PANTOPRAZOLE
     Dates: start: 2021
  6. ALLOPURINOL [Concomitant]
     Active Substance: ALLOPURINOL
     Indication: Gout
     Dates: end: 2021
  7. ALLOPURINOL [Concomitant]
     Active Substance: ALLOPURINOL
  8. ANDROGEL [Concomitant]
     Active Substance: TESTOSTERONE
     Indication: Product used for unknown indication
  9. THYROXINE [Concomitant]
     Active Substance: LEVOTHYROXINE
     Indication: Primary hypothyroidism
  10. ASPIRIN [Concomitant]
     Active Substance: ASPIRIN
     Indication: Silent myocardial infarction
     Dates: start: 202301
  11. PLAVIX [Concomitant]
     Active Substance: CLOPIDOGREL BISULFATE
     Indication: Silent myocardial infarction
  12. IRBESARTAN [Concomitant]
     Active Substance: IRBESARTAN
     Indication: Blood pressure increased
  13. ATORVASTATIN [Concomitant]
     Active Substance: ATORVASTATIN
     Indication: Hypercholesterolaemia
     Dates: start: 20230309, end: 20230806
  14. ATORVASTATIN [Concomitant]
     Active Substance: ATORVASTATIN
     Indication: Hypercholesterolaemia
     Dates: start: 20230309, end: 20230806
  15. EZETIMIBE [Concomitant]
     Active Substance: EZETIMIBE
     Indication: Hypercholesterolaemia
  16. ROSUVASTATIN [Concomitant]
     Active Substance: ROSUVASTATIN
     Indication: Hypercholesterolaemia
     Dates: start: 2023
  17. FLOMAX [Concomitant]
     Active Substance: TAMSULOSIN HYDROCHLORIDE
     Indication: Product used for unknown indication
     Dates: start: 202207
  18. FLUOROURACIL SODIUM [Concomitant]
     Active Substance: FLUOROURACIL SODIUM
     Indication: Actinic keratosis
     Route: 061
     Dates: start: 20240815
  19. CETIRIZINE HYDROCHLORIDE [Concomitant]
     Active Substance: CETIRIZINE HYDROCHLORIDE
     Indication: Rhinitis allergic
     Dates: start: 202501
  20. FLUCLOXACILLIN [Concomitant]
     Active Substance: FLUCLOXACILLIN
     Indication: Swelling
  21. FLUCLOXACILLIN [Concomitant]
     Active Substance: FLUCLOXACILLIN
     Indication: Erythema
  22. FLUCLOXACILLIN [Concomitant]
     Active Substance: FLUCLOXACILLIN
     Indication: Tenderness
  23. PENTAMIDINE [Concomitant]
     Active Substance: PENTAMIDINE
     Indication: Product used for unknown indication
     Route: 042
     Dates: start: 20220815
  24. FILGRASTIM [Concomitant]
     Active Substance: FILGRASTIM
     Indication: Product used for unknown indication
     Dates: start: 20241014
  25. IMMUNOGLOBULINS [Concomitant]
     Indication: Product used for unknown indication
     Route: 042
     Dates: start: 20220816, end: 20250729
  26. FERAHEME [Concomitant]
     Active Substance: FERUMOXYTOL NON-STOICHIOMETRIC MAGNETITE
     Indication: Product used for unknown indication
     Route: 042
     Dates: start: 20250222
  27. FERAHEME [Concomitant]
     Active Substance: FERUMOXYTOL NON-STOICHIOMETRIC MAGNETITE
     Route: 042
     Dates: start: 20230410, end: 20230802
  28. VENOFER [Concomitant]
     Active Substance: IRON SUCROSE
     Indication: Product used for unknown indication
     Dates: start: 20240320, end: 20250204

REACTIONS (2)
  - Duodenal ulcer haemorrhage [Unknown]
  - Cytopenia [Unknown]

NARRATIVE: CASE EVENT DATE: 20220901
